FAERS Safety Report 9746706 (Version 3)
Quarter: 2014Q3

REPORT INFORMATION
  Report Type: Spontaneous
  Country: US (occurrence: US)
  Receive Date: 20131211
  Receipt Date: 20140805
  Transmission Date: 20150326
  Serious: Yes (Hospitalization)
  Sender: FDA-Public Use
  Company Number: US-BAYER-2013-151146

PATIENT
  Age: 32 Year
  Sex: Female
  Weight: 77.1 kg

DRUGS (2)
  1. ORTHO EVRA [Concomitant]
     Active Substance: ETHINYL ESTRADIOL\NORELGESTROMIN
  2. MIRENA [Suspect]
     Active Substance: LEVONORGESTREL
     Indication: CONTRACEPTION
     Dosage: 20 MCG/24HR, CONT
     Route: 015
     Dates: start: 20060412, end: 20071114

REACTIONS (7)
  - Depression [None]
  - Pain [None]
  - Anxiety [None]
  - Emotional distress [None]
  - Uterine perforation [None]
  - Abdominal pain [None]
  - Injury [None]
